FAERS Safety Report 24416673 (Version 1)
Quarter: 2024Q4

REPORT INFORMATION
  Report Type: Spontaneous
  Country: US (occurrence: US)
  Receive Date: 20241009
  Receipt Date: 20241009
  Transmission Date: 20250114
  Serious: No
  Sender: CELLTRION
  Company Number: US-CELLTRION INC.-2024US007099

PATIENT

DRUGS (2)
  1. INFLECTRA [Suspect]
     Active Substance: INFLIXIMAB-DYYB
     Indication: Crohn^s disease
     Dosage: FIRST REGIMEN
     Route: 042
     Dates: end: 202112
  2. INFLECTRA [Suspect]
     Active Substance: INFLIXIMAB-DYYB
     Dosage: SECOND REGIMEN: 285 MG, EVERY 6 WEEKS
     Route: 042
     Dates: start: 202106

REACTIONS (3)
  - Drug level decreased [Recovering/Resolving]
  - Drug specific antibody present [Recovering/Resolving]
  - Intentional product use issue [Unknown]

NARRATIVE: CASE EVENT DATE: 20211201
